FAERS Safety Report 8351902-5 (Version None)
Quarter: 2012Q2

REPORT INFORMATION
  Report Type: 
  Country: None (occurrence: None)
  Receive Date: 20120511
  Receipt Date: 20120509
  Transmission Date: 20120825
  Serious: Yes (Hospitalization)
  Sender: FDA-Public Use
  Company Number: US-PFIZER INC-2012113288

PATIENT
  Sex: Female
  Weight: 51.7 kg

DRUGS (1)
  1. INLYTA [Suspect]
     Indication: LUNG NEOPLASM
     Dosage: UNK
     Dates: start: 20120101

REACTIONS (3)
  - WEIGHT DECREASED [None]
  - DIARRHOEA [None]
  - STOMATITIS [None]
